FAERS Safety Report 6190614-3 (Version None)
Quarter: 2009Q2

REPORT INFORMATION
  Report Type: 
  Country: None (occurrence: None)
  Receive Date: 20090514
  Receipt Date: 20090320
  Transmission Date: 20091009
  Serious: No
  Sender: FDA-Public Use
  Company Number: US-BRISTOL-MYERS SQUIBB COMPANY-14554224

PATIENT
  Age: 51 Year
  Sex: Female
  Weight: 46 kg

DRUGS (3)
  1. IXEMPRA KIT [Suspect]
     Indication: BREAST CANCER
  2. IXEMPRA KIT [Suspect]
     Indication: METASTASES TO CENTRAL NERVOUS SYSTEM
  3. TYKERB [Concomitant]

REACTIONS (2)
  - DIARRHOEA [None]
  - WEIGHT DECREASED [None]
